FAERS Safety Report 6051797-9 (Version None)
Quarter: 2009Q1

REPORT INFORMATION
  Report Type: 
  Country: None (occurrence: None)
  Receive Date: 20090126
  Receipt Date: 20090116
  Transmission Date: 20090719
  Serious: Yes (Other)
  Sender: FDA-Public Use
  Company Number: PHHY2009DE01895

PATIENT
  Age: 71 Year
  Sex: Male

DRUGS (1)
  1. EXELON [Suspect]
     Indication: DEMENTIA
     Dosage: 4.6 MG, QD
     Route: 062
     Dates: start: 20081120, end: 20081128

REACTIONS (7)
  - DIZZINESS [None]
  - FALL [None]
  - GAIT DISTURBANCE [None]
  - HEART RATE INCREASED [None]
  - SINUS TACHYCARDIA [None]
  - SKULL FRACTURE [None]
  - SUBARACHNOID HAEMORRHAGE [None]
